FAERS Safety Report 8287785-1 (Version None)
Quarter: 2012Q2

REPORT INFORMATION
  Report Type: 
  Country: None (occurrence: None)
  Receive Date: 20120416
  Receipt Date: 20120406
  Transmission Date: 20120825
  Serious: Yes (Hospitalization, Disabling)
  Sender: FDA-Public Use
  Company Number: US-MERCK-1108USA02435

PATIENT
  Age: 56 Year
  Sex: Female

DRUGS (6)
  1. FOSAMAX [Suspect]
     Indication: OSTEOPOROSIS
     Route: 048
     Dates: start: 19980101, end: 20020225
  2. ALENDRONATE SODIUM [Suspect]
     Indication: OSTEOPOROSIS
     Route: 048
     Dates: start: 20080713, end: 20091001
  3. CITRICAL [Concomitant]
     Route: 065
     Dates: start: 19950101
  4. VITAMIN D (UNSPECIFIED) [Concomitant]
     Route: 065
     Dates: start: 19950101
  5. FOSAMAX [Suspect]
     Route: 048
     Dates: start: 20020101, end: 20080601
  6. VITAMINS (UNSPECIFIED) [Concomitant]
     Route: 065
     Dates: start: 19950101

REACTIONS (18)
  - FEMUR FRACTURE [None]
  - FRACTURE NONUNION [None]
  - FALL [None]
  - PERIODONTAL DISEASE [None]
  - PAIN IN EXTREMITY [None]
  - ADVERSE DRUG REACTION [None]
  - OEDEMA PERIPHERAL [None]
  - TOOTH DISORDER [None]
  - MUCOSAL ATROPHY [None]
  - JOINT CREPITATION [None]
  - RASH ERYTHEMATOUS [None]
  - FACIAL NERVE DISORDER [None]
  - CARDIAC DISORDER [None]
  - DEVICE FAILURE [None]
  - LOW TURNOVER OSTEOPATHY [None]
  - LIMB ASYMMETRY [None]
  - BURSITIS [None]
  - BREAST MASS [None]
